FAERS Safety Report 8533528-3 (Version None)
Quarter: 2012Q3

REPORT INFORMATION
  Report Type: 
  Country: None (occurrence: None)
  Receive Date: 20120724
  Receipt Date: 20120719
  Transmission Date: 20120928
  Serious: Yes (Other)
  Sender: FDA-Public Use
  Company Number: US-PFIZER INC-2012175248

PATIENT
  Sex: Male
  Weight: 89.796 kg

DRUGS (5)
  1. PRISTIQ [Suspect]
     Indication: IRRITABILITY
  2. PRISTIQ [Suspect]
     Indication: NERVOUSNESS
  3. NAMENDA [Concomitant]
     Indication: AMNESIA
     Dosage: UNK
  4. PRISTIQ [Suspect]
     Indication: ANXIETY
     Dosage: 50 MG, 1X/DAY
     Route: 048
     Dates: start: 20120701
  5. PRISTIQ [Suspect]
     Indication: DEPRESSION

REACTIONS (3)
  - LOSS OF CONSCIOUSNESS [None]
  - DRUG INEFFECTIVE [None]
  - ANXIETY [None]
